FAERS Safety Report 13791544 (Version 1)
Quarter: 2017Q3

REPORT INFORMATION
  Report Type: Spontaneous
  Country: US (occurrence: US)
  Receive Date: 20170725
  Receipt Date: 20170725
  Transmission Date: 20171127
  Serious: No
  Sender: FDA-Public Use
  Company Number: US-BAYER-2017-133406

PATIENT
  Age: 92 Year
  Sex: Male
  Weight: 82 kg

DRUGS (2)
  1. MIRALAX [Suspect]
     Active Substance: POLYETHYLENE GLYCOL 3350
     Indication: GASTROINTESTINAL DISORDER
     Dosage: 1 DF, UNK (AS NEEDED WITH 8 OZ OF WATER )
     Route: 048
     Dates: start: 2013, end: 20170709
  2. MIRALAX [Suspect]
     Active Substance: POLYETHYLENE GLYCOL 3350
     Indication: GASTROINTESTINAL DISORDER
     Dosage: UNK
     Dates: start: 2017

REACTIONS (8)
  - Frequent bowel movements [Unknown]
  - Flatulence [Unknown]
  - Expired product administered [None]
  - Bowel movement irregularity [Unknown]
  - Diarrhoea [Unknown]
  - Diarrhoea [Unknown]
  - Drug ineffective [Unknown]
  - Faeces soft [Unknown]

NARRATIVE: CASE EVENT DATE: 2013
